FAERS Safety Report 13374104 (Version 1)
Quarter: 2017Q1

REPORT INFORMATION
  Report Type: Spontaneous
  Country: AT (occurrence: AT)
  Receive Date: 20170327
  Receipt Date: 20170327
  Transmission Date: 20170429
  Serious: Yes (Disabling)
  Sender: FDA-Public Use
  Company Number: AT-JNJFOC-20170326799

PATIENT
  Age: 64 Year
  Sex: Male
  Weight: 99 kg

DRUGS (2)
  1. ADJUVIN [Suspect]
     Active Substance: SERTRALINE HYDROCHLORIDE
     Indication: PRODUCT USED FOR UNKNOWN INDICATION
     Route: 065
     Dates: start: 20160804, end: 20160814
  2. TRAMAL [Suspect]
     Active Substance: TRAMADOL
     Indication: VERTEBRAL LESION
     Dosage: SINCE 4 YEARS
     Route: 065
     Dates: end: 20160814

REACTIONS (5)
  - Dysgeusia [Recovered/Resolved with Sequelae]
  - Deafness unilateral [Recovered/Resolved with Sequelae]
  - Hyposmia [Recovered/Resolved with Sequelae]
  - Mydriasis [Recovered/Resolved with Sequelae]
  - Ocular hypertension [Recovered/Resolved with Sequelae]

NARRATIVE: CASE EVENT DATE: 20160807
